FAERS Safety Report 6735303-9 (Version None)
Quarter: 2010Q2

REPORT INFORMATION
  Report Type: 
  Country: None (occurrence: None)
  Receive Date: 20100520
  Receipt Date: 20100520
  Transmission Date: 20101027
  Serious: Yes (Other)
  Sender: FDA-Public Use
  Company Number: None

PATIENT
  Sex: Female
  Weight: 65.318 kg

DRUGS (1)
  1. OCELLA [Suspect]
     Indication: CONTRACEPTION
     Dosage: 1 TAB PO DAILY
     Route: 048

REACTIONS (4)
  - BREAST TENDERNESS [None]
  - DRY EYE [None]
  - EMOTIONAL DISORDER [None]
  - MEDICAL DEVICE COMPLICATION [None]
